FAERS Safety Report 14079535 (Version 1)
Quarter: 2017Q4

REPORT INFORMATION
  Report Type: Spontaneous
  Country: CN (occurrence: CN)
  Receive Date: 20171012
  Receipt Date: 20171012
  Transmission Date: 20180321
  Serious: Yes (Hospitalization)
  Sender: FDA-Public Use
  Company Number: CN-PFIZER INC-2017436562

PATIENT
  Age: 44 Year
  Sex: Female
  Weight: 50 kg

DRUGS (2)
  1. YI YU [Suspect]
     Active Substance: EPERISONE HYDROCHLORIDE
     Indication: ARTHRALGIA
     Dosage: 50 MG, 3X/DAY
     Route: 048
     Dates: start: 20170805, end: 20170805
  2. CELEBREX [Suspect]
     Active Substance: CELECOXIB
     Indication: ARTHRALGIA
     Dosage: 0.2 G, 1X/DAY
     Route: 048
     Dates: start: 20170805, end: 20170805

REACTIONS (3)
  - Erythema [Recovered/Resolved]
  - Rash pruritic [Recovered/Resolved]
  - Drug eruption [Recovered/Resolved]

NARRATIVE: CASE EVENT DATE: 20170805
